FAERS Safety Report 4350838-4 (Version None)
Quarter: 2004Q2

REPORT INFORMATION
  Report Type: 
  Country: None (occurrence: None)
  Receive Date: 20040427
  Receipt Date: 20040414
  Transmission Date: 20050107
  Serious: Yes (Hospitalization)
  Sender: FDA-Public Use
  Company Number: 2004-BP-02914NB

PATIENT
  Age: 60 Year
  Sex: Female

DRUGS (7)
  1. MICARDIS [Suspect]
     Indication: HYPERTENSION
     Dosage: 20 MG (20 MG)
     Route: 048
     Dates: end: 20040413
  2. AZULFIDINE-EN (TAR) [Concomitant]
  3. RANTUDIL (ACEMETACIN) (TA) [Concomitant]
  4. ONEALFA (KA) [Concomitant]
  5. SM (PL) [Concomitant]
  6. LAC B (LACTOBACILLUS BIFIDUS, LYOPHILIZED) (PL) [Concomitant]
  7. MARZULENE S (MARZULENE S) (PL) [Concomitant]

REACTIONS (2)
  - EXANTHEM [None]
  - RASH GENERALISED [None]
